FAERS Safety Report 9443935 (Version 2)
Quarter: 2013Q4

REPORT INFORMATION
  Report Type: Spontaneous
  Country: GB (occurrence: GB)
  Receive Date: 20130807
  Receipt Date: 20131230
  Transmission Date: 20140711
  Serious: Yes (Other)
  Sender: FDA-Public Use
  Company Number: JP-ASTRAZENECA-2013SE60831

PATIENT
  Sex: Male

DRUGS (1)
  1. AMIAS [Suspect]
     Indication: HYPERTENSION
     Route: 048

REACTIONS (1)
  - Cerebrovascular accident [Unknown]
